FAERS Safety Report 5202525-8 (Version None)
Quarter: 2007Q1

REPORT INFORMATION
  Report Type: 
  Country: None (occurrence: None)
  Receive Date: 20070109
  Receipt Date: 20070103
  Transmission Date: 20070707
  Serious: Yes (Hospitalization)
  Sender: FDA-Public Use
  Company Number: FR-PFIZER INC-2007001534

PATIENT
  Age: 70 Year
  Sex: Female

DRUGS (3)
  1. XALATAN [Suspect]
     Route: 047
  2. VASTAREL [Suspect]
     Dosage: TEXT:2 DF
     Route: 048
  3. ANASTROZOLE [Suspect]
     Dosage: TEXT:1 DF
     Route: 048

REACTIONS (2)
  - CUTANEOUS VASCULITIS [None]
  - PURPURA [None]
